FAERS Safety Report 4515742-7 (Version None)
Quarter: 2004Q4

REPORT INFORMATION
  Report Type: 
  Country: None (occurrence: None)
  Receive Date: 20041122
  Receipt Date: 20041103
  Transmission Date: 20050328
  Serious: Yes (Death, Hospitalization)
  Sender: FDA-Public Use
  Company Number: 601614

PATIENT
  Age: 90 Year
  Sex: Male
  Weight: 66.7 kg

DRUGS (8)
  1. GAMMAGARD S/D [Suspect]
     Indication: CHRONIC INFLAMMATORY DEMYELINATING POLYRADICULONEUROPATHY
     Dosage: 25 GM, QD; INTRAVENOUS
     Route: 042
     Dates: start: 20041022, end: 20041026
  2. GAMMAGARD S/D [Suspect]
  3. ACETAMINOPHEN [Concomitant]
  4. BENADRYL ^WARNER-LAMBERT^ [Concomitant]
  5. POTASSIUM [Concomitant]
  6. COLCHICINE [Concomitant]
  7. FUROSEMIDE [Concomitant]
  8. ASPIRIN [Concomitant]

REACTIONS (6)
  - BRADYCARDIA [None]
  - DIARRHOEA [None]
  - HEART RATE IRREGULAR [None]
  - INFUSION RELATED REACTION [None]
  - RALES [None]
  - RHONCHI [None]
